FAERS Safety Report 8812434 (Version 1)
Quarter: 2012Q4

REPORT INFORMATION
  Report Type: 
  Country: US (occurrence: US)
  Receive Date: 20120927
  Receipt Date: 20120927
  Transmission Date: 20130627
  Serious: Yes (Death, Other)
  Sender: FDA-Public Use
  Company Number: US-ROCHE-1125001

PATIENT
  Age: 62 Year
  Sex: Female

DRUGS (3)
  1. AVASTIN [Suspect]
     Indication: RECTOSIGMOID CANCER
     Route: 065
     Dates: start: 20051026
  2. AVASTIN [Suspect]
     Indication: GASTRIC CANCER
  3. IRINOTECAN [Concomitant]
     Indication: RECTOSIGMOID CANCER

REACTIONS (6)
  - Death [Fatal]
  - Metastases to central nervous system [Unknown]
  - Disease progression [Unknown]
  - Confusional state [Unknown]
  - Somnolence [Unknown]
  - Abdominal mass [Unknown]
